FAERS Safety Report 25318634 (Version 1)
Quarter: 2025Q2

REPORT INFORMATION
  Report Type: Spontaneous
  Country: FR (occurrence: FR)
  Receive Date: 20250515
  Receipt Date: 20250515
  Transmission Date: 20250717
  Serious: Yes (Hospitalization)
  Sender: FRESENIUS KABI
  Company Number: None

PATIENT
  Age: 73 Year
  Sex: Male
  Weight: 61 kg

DRUGS (14)
  1. TOCILIZUMAB [Suspect]
     Active Substance: TOCILIZUMAB
     Indication: B-cell lymphoma
     Dosage: 3 INJECT IN TOTAL
     Route: 042
     Dates: start: 20250306, end: 20250308
  2. YESCARTA [Suspect]
     Active Substance: AXICABTAGENE CILOLEUCEL
     Indication: B-cell lymphoma
     Route: 042
     Dates: start: 20250303
  3. VALACICLOVIR HYDROCHLORIDE [VALACICLOVIR HYDROCHLORIDE] [Concomitant]
     Indication: Product used for unknown indication
  4. BACTRIM [Concomitant]
     Active Substance: SULFAMETHOXAZOLE\TRIMETHOPRIM
     Indication: Product used for unknown indication
  5. FOLINORAL [CALCIUM FOLINATE] [Concomitant]
     Indication: Product used for unknown indication
  6. LANSOPRAZOLE [Concomitant]
     Active Substance: LANSOPRAZOLE
     Indication: Product used for unknown indication
  7. KARDEGIC [ACETYLSALICYLATE OF DL-LYSINE, DL-LYSINE (ACETYLSALICYLATE O [Concomitant]
     Indication: Product used for unknown indication
  8. MANIDIPINE HYDROCHLORIDE [Concomitant]
     Active Substance: MANIDIPINE HYDROCHLORIDE
     Indication: Product used for unknown indication
  9. FORLAX [MACROGOL 4000, POLYOXYETHYLENE (75)] [Concomitant]
     Indication: Product used for unknown indication
  10. SYNJARDY [METFORMIN (HYDROCHLORIDE), EMPAGLIFLOZIN] [Concomitant]
     Indication: Product used for unknown indication
  11. TOUJEO [INSULIN GLARGINE ((BACTERIA/ESCHERICHIA COLI))] [Concomitant]
     Indication: Product used for unknown indication
  12. NOVORAPID [INSULIN ASPART ((YEAST/SACCHAROMYCES CEREVISIAE))] [Concomitant]
     Indication: Product used for unknown indication
  13. ZARZIO [FILGRASTIM ((BACTERIA/ESCHERICHIA COLI))] [Concomitant]
     Indication: Product used for unknown indication
  14. BINOCRIT [EPOETINE ALFA ((MAMMAL/HAMSTER/CELLS CHO))] [Concomitant]
     Indication: Product used for unknown indication

REACTIONS (4)
  - Rash [Recovering/Resolving]
  - Enanthema [Recovering/Resolving]
  - Paronychia [Recovering/Resolving]
  - Keratitis [Recovering/Resolving]

NARRATIVE: CASE EVENT DATE: 20250320
